FAERS Safety Report 4972476-2 (Version None)
Quarter: 2006Q2

REPORT INFORMATION
  Report Type: 
  Country: None (occurrence: None)
  Receive Date: 20060413
  Receipt Date: 20060404
  Transmission Date: 20061013
  Serious: Yes (Hospitalization)
  Sender: FDA-Public Use
  Company Number: US-MERCK-0604USA00500

PATIENT
  Age: 79 Year
  Sex: Female

DRUGS (8)
  1. FOSAMAX [Suspect]
     Route: 048
     Dates: start: 20060325
  2. POTASSIUM (UNSPECIFIED) [Concomitant]
     Route: 065
  3. ISOSORBIDE MONONITRATE ER [Concomitant]
     Route: 065
  4. LEXAPRO [Concomitant]
     Route: 065
  5. TOPROL-XL [Concomitant]
     Route: 065
  6. SEROQUEL [Concomitant]
     Route: 065
  7. ARICEPT [Concomitant]
     Route: 065
  8. ZOCOR [Concomitant]
     Route: 048

REACTIONS (2)
  - CHEST PAIN [None]
  - PAIN IN EXTREMITY [None]
